FAERS Safety Report 7968157-3 (Version None)
Quarter: 2011Q4

REPORT INFORMATION
  Report Type: 
  Country: None (occurrence: None)
  Receive Date: 20111207
  Receipt Date: 20111130
  Transmission Date: 20120403
  Serious: Yes (Other)
  Sender: FDA-Public Use
  Company Number: AUR-APL-2011-06024

PATIENT
  Age: 50 Year
  Sex: Female

DRUGS (5)
  1. ZOLPIDEM [Concomitant]
  2. MELPERON (MELPERONE HYDROCHLORIDE) [Concomitant]
  3. SEROQUEL [Concomitant]
  4. MIRTAZAPINE [Suspect]
     Indication: PRODUCT USED FOR UNKNOWN INDICATION
     Dosage: 30 MG, 1 D, ORAL
     Route: 048
     Dates: start: 20110516, end: 20110519
  5. DOMINAL (ACETYLSALICYLIC ACID) [Concomitant]

REACTIONS (1)
  - RESTLESS LEGS SYNDROME [None]
